FAERS Safety Report 10196107 (Version 1)
Quarter: 2014Q2

REPORT INFORMATION
  Report Type: Spontaneous
  Country: US (occurrence: None)
  Receive Date: 20140522
  Receipt Date: 20140522
  Transmission Date: 20141212
  Serious: Yes (Hospitalization)
  Sender: FDA-Public Use
  Company Number: UTC-048379

PATIENT
  Age: 61 Year
  Sex: Male
  Weight: 132.4 kg

DRUGS (2)
  1. TYVASO (TREPROSTINIL SODIUM) INHALATION GAS, 0.6MG/ML [Suspect]
     Indication: COR PULMONALE CHRONIC
     Route: 055
     Dates: start: 20120910
  2. ADCIRCA (TADALAFIL) [Concomitant]

REACTIONS (1)
  - Cardiac failure congestive [None]
